FAERS Safety Report 7135611-6 (Version None)
Quarter: 2010Q4

REPORT INFORMATION
  Report Type: 
  Country: None (occurrence: None)
  Receive Date: 20101203
  Receipt Date: 20101122
  Transmission Date: 20110411
  Serious: Yes (Hospitalization, Other)
  Sender: FDA-Public Use
  Company Number: US-ELI_LILLY_AND_COMPANY-US201011000186

PATIENT
  Sex: Female

DRUGS (19)
  1. FORTEO [Suspect]
     Dosage: 20 UG, DAILY (1/D)
  2. PREDNISONE [Concomitant]
  3. DILTIAZEM [Concomitant]
  4. DETROL LA [Concomitant]
  5. TRIAMTERENE [Concomitant]
  6. ALBUTEROL [Concomitant]
  7. LEVAQUIN [Concomitant]
  8. SPIRIVA [Concomitant]
  9. PULMICORT [Concomitant]
  10. XOPENEX [Concomitant]
  11. DYAZIDE [Concomitant]
  12. SINGULAIR [Concomitant]
  13. PREVACID [Concomitant]
  14. SYNTHROID [Concomitant]
     Dosage: 0.088 MG, DAILY (1/D)
  15. CARDIZEM [Concomitant]
     Dosage: 180 MG, DAILY (1/D)
  16. COLACE [Concomitant]
     Dosage: 100 MG, 2/D
  17. PEPCID [Concomitant]
     Dosage: 40 MG, UNK
  18. ATROVENT [Concomitant]
  19. PRILOSEC [Concomitant]
     Dosage: 40 MG, UNK

REACTIONS (3)
  - CHRONIC OBSTRUCTIVE PULMONARY DISEASE [None]
  - HYPERGLYCAEMIA [None]
  - MYOPATHY [None]
